FAERS Safety Report 5602783-1 (Version None)
Quarter: 2008Q1

REPORT INFORMATION
  Report Type: 
  Country: None (occurrence: None)
  Receive Date: 20080125
  Receipt Date: 20080117
  Transmission Date: 20080703
  Serious: Yes (Hospitalization)
  Sender: FDA-Public Use
  Company Number: JP-SP-2007-03454

PATIENT
  Age: 83 Year
  Sex: Male

DRUGS (4)
  1. IMMUCYST [Suspect]
     Indication: CARCINOMA IN SITU OF BLADDER
     Route: 043
     Dates: start: 20070723, end: 20070919
  2. DICLOFENAC SODIUM [Concomitant]
     Route: 065
     Dates: start: 20050723, end: 20070919
  3. SPARFLOXACIN [Concomitant]
     Route: 065
     Dates: start: 20070821, end: 20070826
  4. LEVOFLOXACIN [Concomitant]
     Route: 065
     Dates: start: 20070723, end: 20070728

REACTIONS (1)
  - RENAL FAILURE ACUTE [None]
